FAERS Safety Report 15642147 (Version 1)
Quarter: 2018Q4

REPORT INFORMATION
  Report Type: Spontaneous
  Country: US (occurrence: US)
  Receive Date: 20181114
  Receipt Date: 20181114
  Transmission Date: 20190205
  Serious: Yes (Hospitalization)
  Sender: FDA-Public Use
  Company Number: None

PATIENT
  Age: 65 Year
  Sex: Male

DRUGS (1)
  1. ZYTIGA [Suspect]
     Active Substance: ABIRATERONE ACETATE
     Indication: PROSTATE CANCER METASTATIC
     Route: 048
     Dates: start: 20180728

REACTIONS (5)
  - Dizziness [None]
  - Back pain [None]
  - Headache [None]
  - Dyspnoea [None]
  - Deafness unilateral [None]

NARRATIVE: CASE EVENT DATE: 20181111
